FAERS Safety Report 10205903 (Version 1)
Quarter: 2014Q2

REPORT INFORMATION
  Report Type: Spontaneous
  Country: GB (occurrence: GB)
  Receive Date: 20140530
  Receipt Date: 20140530
  Transmission Date: 20141212
  Serious: No
  Sender: FDA-Public Use
  Company Number: GB-009507513-1405GBR015245

PATIENT
  Sex: Female

DRUGS (1)
  1. SINGULAIR [Suspect]
     Dosage: UNK
     Route: 048

REACTIONS (1)
  - Gastrointestinal disorder [Unknown]
